FAERS Safety Report 12521207 (Version 1)
Quarter: 2016Q2

REPORT INFORMATION
  Report Type: Spontaneous
  Country: US (occurrence: None)
  Receive Date: 20160630
  Receipt Date: 20160630
  Transmission Date: 20160815
  Serious: Yes (Other)
  Sender: FDA-Public Use
  Company Number: None

PATIENT
  Age: 37 Year
  Sex: Female

DRUGS (7)
  1. LOVASTATIN. [Concomitant]
     Active Substance: LOVASTATIN
  2. LISINOPRIL. [Concomitant]
     Active Substance: LISINOPRIL
  3. AMPYRA [Suspect]
     Active Substance: DALFAMPRIDINE
     Indication: MULTIPLE SCLEROSIS
     Route: 048
     Dates: start: 20160601
  4. NORGESTIMATE/ETHINYL ESTRADIOL [Concomitant]
     Active Substance: ETHINYL ESTRADIOL\NORGESTIMATE
  5. HUMALOG [Concomitant]
     Active Substance: INSULIN LISPRO
  6. GLATIRAMER [Concomitant]
     Active Substance: GLATIRAMER
  7. TROSPIUM [Concomitant]
     Active Substance: TROSPIUM

REACTIONS (2)
  - Urge incontinence [None]
  - Urinary tract infection [None]

NARRATIVE: CASE EVENT DATE: 20160620
